FAERS Safety Report 24120293 (Version 1)
Quarter: 2024Q3

REPORT INFORMATION
  Report Type: Spontaneous
  Country: US (occurrence: None)
  Receive Date: 20240718
  Receipt Date: 20240718
  Transmission Date: 20241016
  Serious: Yes (Hospitalization)
  Sender: Public
  Company Number: None

PATIENT

DRUGS (1)
  1. IZERVAY [Suspect]
     Active Substance: AVACINCAPTAD PEGOL SODIUM

REACTIONS (7)
  - Ocular hyperaemia [None]
  - Confusional state [None]
  - Hypotension [None]
  - Somnolence [None]
  - Blindness [None]
  - Impaired driving ability [None]
  - Balance disorder [None]

NARRATIVE: CASE EVENT DATE: 20240619
